FAERS Safety Report 7798516-3 (Version None)
Quarter: 2011Q4

REPORT INFORMATION
  Report Type: 
  Country: None (occurrence: None)
  Receive Date: 20111005
  Receipt Date: 20110913
  Transmission Date: 20120403
  Serious: Yes (Other)
  Sender: FDA-Public Use
  Company Number: JP-ABBOTT-11P-087-0857924-00

PATIENT
  Sex: Male

DRUGS (6)
  1. AKINETON [Suspect]
     Indication: PRODUCT USED FOR UNKNOWN INDICATION
     Route: 030
  2. ETIZOLAM [Suspect]
     Indication: DEPRESSION
  3. ALPRAZOLAM [Suspect]
     Indication: DEPRESSION
     Route: 048
  4. VALPROATE SODIUM [Suspect]
     Indication: DEPRESSION
  5. LITHIUM CARBONATE [Suspect]
     Indication: DEPRESSION
     Route: 048
  6. ARIPIPRAZOLE [Suspect]
     Indication: AKATHISIA

REACTIONS (2)
  - AKATHISIA [None]
  - DELIRIUM [None]
